FAERS Safety Report 21911347 (Version 1)
Quarter: 2023Q1

REPORT INFORMATION
  Report Type: Spontaneous
  Country: JP (occurrence: JP)
  Receive Date: 20230125
  Receipt Date: 20230125
  Transmission Date: 20230418
  Serious: No
  Sender: FDA-Public Use
  Company Number: JP-ALLERGAN-2301185US

PATIENT
  Age: 5 Decade
  Sex: Male

DRUGS (1)
  1. ASENAPINE MALEATE [Suspect]
     Active Substance: ASENAPINE MALEATE
     Indication: Tremor
     Dosage: 5 MG, BID
     Route: 060

REACTIONS (4)
  - Chest discomfort [Recovered/Resolved]
  - Dyspnoea [Recovered/Resolved]
  - Blood triglycerides increased [Unknown]
  - Dysgeusia [Unknown]
